FAERS Safety Report 4802566-6 (Version None)
Quarter: 2005Q4

REPORT INFORMATION
  Report Type: 
  Country: None (occurrence: None)
  Receive Date: 20051011
  Receipt Date: 20050929
  Transmission Date: 20060501
  Serious: Yes (Hospitalization)
  Sender: FDA-Public Use
  Company Number: 2005125643

PATIENT
  Sex: Female

DRUGS (7)
  1. LIPITOR [Suspect]
     Indication: BLOOD CHOLESTEROL INCREASED
  2. AROMASIN [Suspect]
     Indication: BREAST CANCER
     Dates: start: 20050501
  3. ARICEPT [Suspect]
     Indication: DEPRESSION
  4. LUMIGAN [Suspect]
     Indication: GLAUCOMA
     Dosage: 1 DROP (1 DROP, QHS INTERVAL:  EVERY NIGHT), OPHTHALMIC
     Route: 047
     Dates: start: 20050801
  5. CALCIUM WITH VITAMIN D (CALCIUM PHOSPHATE, CALCIUM SODIUM LACTATE, ERG [Concomitant]
  6. DITROPAN [Concomitant]
  7. FOSAMAX [Concomitant]

REACTIONS (14)
  - ACNE [None]
  - ANKLE FRACTURE [None]
  - BODY HEIGHT DECREASED [None]
  - BREAST CANCER [None]
  - CONDITION AGGRAVATED [None]
  - DEPRESSION [None]
  - EXERCISE TOLERANCE DECREASED [None]
  - GLAUCOMA [None]
  - HIP FRACTURE [None]
  - HYPERTONIC BLADDER [None]
  - OCULAR HYPERAEMIA [None]
  - RASH [None]
  - SCAR [None]
  - WEIGHT FLUCTUATION [None]
